FAERS Safety Report 25988329 (Version 1)
Quarter: 2025Q4

REPORT INFORMATION
  Report Type: Spontaneous
  Country: US (occurrence: US)
  Receive Date: 20251103
  Receipt Date: 20251103
  Transmission Date: 20260118
  Serious: Yes (Death, Other)
  Sender: CIPLA
  Company Number: US-CIPLA (EU) LIMITED-2025US13592

PATIENT

DRUGS (1)
  1. LENALIDOMIDE [Suspect]
     Active Substance: LENALIDOMIDE
     Indication: Plasma cell myeloma
     Dosage: 10 MILLIGRAM, QD (FOR 21 DAYS, THEN 7 DAYS OFF)
     Route: 048
     Dates: start: 202507, end: 202510

REACTIONS (1)
  - Death [Fatal]
